FAERS Safety Report 16994895 (Version 2)
Quarter: 2020Q1

REPORT INFORMATION
  Report Type: Spontaneous
  Country: US (occurrence: US)
  Receive Date: 20191105
  Receipt Date: 20200106
  Transmission Date: 20200409
  Serious: No
  Sender: FDA-Public Use
  Company Number: US-PFIZER INC-2019472847

PATIENT
  Sex: Female

DRUGS (1)
  1. XELJANZ [Suspect]
     Active Substance: TOFACITINIB CITRATE
     Indication: RHEUMATOID ARTHRITIS
     Dosage: 5 MG, 2X/DAY
     Dates: start: 201907, end: 201912

REACTIONS (6)
  - Abdominal discomfort [Unknown]
  - Intentional product misuse [Unknown]
  - Energy increased [Unknown]
  - Abdominal distension [Unknown]
  - Feeling abnormal [Unknown]
  - Sleep disorder [Unknown]
